FAERS Safety Report 10183743 (Version 2)
Quarter: 2014Q2

REPORT INFORMATION
  Report Type: Spontaneous
  Country: US (occurrence: US)
  Receive Date: 20140520
  Receipt Date: 20140627
  Transmission Date: 20141212
  Serious: Yes (Other)
  Sender: FDA-Public Use
  Company Number: US-PFIZER INC-2014136253

PATIENT
  Age: 66 Year
  Sex: Female
  Weight: 77 kg

DRUGS (3)
  1. PREMARIN [Suspect]
     Indication: POSTOPERATIVE CARE
     Dosage: 1 G, DAILY
     Route: 067
     Dates: start: 20140409
  2. PREMARIN [Suspect]
     Dosage: 1 G, 1X/DAY (NIGHTLY)
     Route: 067
     Dates: start: 20140508
  3. PREMARIN [Suspect]
     Dosage: 2-3 TIMES PER WEEK
     Route: 067

REACTIONS (1)
  - Vaginal prolapse [Unknown]
